FAERS Safety Report 7190380-9 (Version None)
Quarter: 2010Q4

REPORT INFORMATION
  Report Type: 
  Country: None (occurrence: None)
  Receive Date: 20101210
  Receipt Date: 20101130
  Transmission Date: 20110411
  Serious: Yes (Hospitalization)
  Sender: FDA-Public Use
  Company Number: 2010MA004916

PATIENT
  Age: 70 Year
  Sex: Male

DRUGS (5)
  1. HYDROCHLOROTHIAZIDE [Suspect]
  2. AZILECT [Suspect]
     Indication: PARKINSON'S DISEASE
  3. ROTIGOTINE (NO PRE. NAME) [Suspect]
  4. QUETIAPINE FUMARATE [Suspect]
  5. LEVODOPA [Concomitant]

REACTIONS (1)
  - RHABDOMYOLYSIS [None]
